FAERS Safety Report 15575034 (Version 1)
Quarter: 2018Q4

REPORT INFORMATION
  Report Type: Spontaneous
  Country: US (occurrence: US)
  Receive Date: 20181101
  Receipt Date: 20181101
  Transmission Date: 20190205
  Serious: Yes (Hospitalization)
  Sender: FDA-Public Use
  Company Number: None

PATIENT
  Age: 87 Year
  Sex: Male
  Weight: 77.8 kg

DRUGS (9)
  1. APIXABAN [Suspect]
     Active Substance: APIXABAN
     Indication: ATRIAL FIBRILLATION
     Route: 048
     Dates: start: 20180629, end: 20181030
  2. ATENOLOL. [Concomitant]
     Active Substance: ATENOLOL
     Dates: start: 20180428, end: 20181031
  3. AZITHROMYCIN ANHYDROUS. [Concomitant]
     Active Substance: AZITHROMYCIN ANHYDROUS
     Dates: start: 20181027, end: 20181028
  4. PAROXETINE. [Concomitant]
     Active Substance: PAROXETINE
     Dates: start: 20181027, end: 20181030
  5. OMEPRAZOLE. [Concomitant]
     Active Substance: OMEPRAZOLE
     Dates: start: 20180507, end: 20181026
  6. MEROPENEM. [Concomitant]
     Active Substance: MEROPENEM
     Dates: start: 20181027, end: 20181030
  7. AMLODIPINE [Concomitant]
     Active Substance: AMLODIPINE BESYLATE
     Dates: start: 20180424, end: 20181031
  8. LOSARTAN. [Concomitant]
     Active Substance: LOSARTAN
     Dates: start: 20181027, end: 20181030
  9. MONTELUKAST [Concomitant]
     Active Substance: MONTELUKAST SODIUM
     Dates: start: 20181027, end: 20181030

REACTIONS (3)
  - Basal ganglia haemorrhage [None]
  - Intraventricular haemorrhage [None]
  - Haematoma [None]

NARRATIVE: CASE EVENT DATE: 20181030
